FAERS Safety Report 5647514-4 (Version None)
Quarter: 2008Q1

REPORT INFORMATION
  Report Type: 
  Country: None (occurrence: None)
  Receive Date: 20080303
  Receipt Date: 20080219
  Transmission Date: 20080703
  Serious: Yes (Other)
  Sender: FDA-Public Use
  Company Number: US-ELI_LILLY_AND_COMPANY-US200801001727

PATIENT
  Sex: Female

DRUGS (2)
  1. PROZAC [Suspect]
     Dosage: 80 MG, DAILY (1/D)
  2. GEODON [Concomitant]
     Dosage: 80 MG, 2/D

REACTIONS (1)
  - TRISMUS [None]
